FAERS Safety Report 7887414-2 (Version None)
Quarter: 2011Q4

REPORT INFORMATION
  Report Type: 
  Country: None (occurrence: None)
  Receive Date: 20111102
  Receipt Date: 20110719
  Transmission Date: 20120403
  Serious: No
  Sender: FDA-Public Use
  Company Number: US-AMGEN-USASP2011036708

PATIENT
  Age: 47 Year
  Sex: Female
  Weight: 93.878 kg

DRUGS (5)
  1. FOLIC ACID [Concomitant]
     Dosage: UNK
  2. METHOTREXATE [Concomitant]
     Dosage: 2.5 MG, UNK
  3. TYLENOL-500 [Concomitant]
     Dosage: 325 MG, UNK
  4. LEUCOVORIN CALCIUM [Concomitant]
     Dosage: 5 MG, UNK
  5. ENBREL [Suspect]
     Indication: PRODUCT USED FOR UNKNOWN INDICATION
     Dosage: 50 MG, QWK
     Route: 058

REACTIONS (1)
  - ALOPECIA [None]
